FAERS Safety Report 18927768 (Version 5)
Quarter: 2021Q2

REPORT INFORMATION
  Report Type: Spontaneous
  Country: DE (occurrence: DE)
  Receive Date: 20210223
  Receipt Date: 20210407
  Transmission Date: 20210717
  Serious: Yes (Other)
  Sender: FDA-Public Use
  Company Number: NVSC2020DE222407

PATIENT
  Age: 67 Year
  Sex: Male

DRUGS (9)
  1. SUFENTANIL [Suspect]
     Active Substance: SUFENTANIL
     Indication: ACUTE RESPIRATORY DISTRESS SYNDROME
     Dosage: 50?100 UG, QH
     Route: 042
     Dates: start: 20200319, end: 20200423
  2. PROPOFOL. [Suspect]
     Active Substance: PROPOFOL
     Indication: ACUTE RESPIRATORY DISTRESS SYNDROME
     Dosage: 60?240 MG, QH
     Route: 042
     Dates: start: 20200319, end: 20200404
  3. NOREPINEPHRINE. [Suspect]
     Active Substance: NOREPINEPHRINE
     Dosage: UNK
     Route: 042
     Dates: start: 20200421
  4. NOREPINEPHRINE. [Suspect]
     Active Substance: NOREPINEPHRINE
     Indication: ACUTE RESPIRATORY DISTRESS SYNDROME
     Dosage: 50?300 UG, QH
     Route: 042
     Dates: end: 20200421
  5. ENOXAPARIN [Suspect]
     Active Substance: ENOXAPARIN
     Indication: ACUTE RESPIRATORY DISTRESS SYNDROME
     Dosage: 40 MG, QD
     Route: 058
     Dates: end: 20200423
  6. METOCLOPRAMIDE. [Suspect]
     Active Substance: METOCLOPRAMIDE
     Indication: ACUTE RESPIRATORY DISTRESS SYNDROME
     Dosage: 10 MG, QD
     Route: 042
     Dates: end: 20200417
  7. METOCLOPRAMIDE. [Suspect]
     Active Substance: METOCLOPRAMIDE
     Dosage: 10 MG, QD
     Route: 042
     Dates: start: 20200417
  8. MACROGOL [Suspect]
     Active Substance: POLYETHYLENE GLYCOLS
     Indication: ACUTE RESPIRATORY DISTRESS SYNDROME
     Dosage: 13 G, QD (VIA FEEDING TUBE)
     Route: 049
     Dates: end: 20200423
  9. PANTOPRAZOLE [Suspect]
     Active Substance: PANTOPRAZOLE
     Indication: ACUTE RESPIRATORY DISTRESS SYNDROME
     Dosage: 40 MG, QD (COVID?19)
     Route: 042
     Dates: end: 20200423

REACTIONS (1)
  - Symmetrical drug-related intertriginous and flexural exanthema [Recovered/Resolved]

NARRATIVE: CASE EVENT DATE: 20200330
